FAERS Safety Report 4875677-7 (Version None)
Quarter: 2006Q1

REPORT INFORMATION
  Report Type: 
  Country: None (occurrence: None)
  Receive Date: 20060105
  Receipt Date: 20051220
  Transmission Date: 20060701
  Serious: Yes (Hospitalization)
  Sender: FDA-Public Use
  Company Number: DSA_27586_2005

PATIENT
  Age: 75 Year
  Sex: Female

DRUGS (1)
  1. ENALAPRIL MALEATE AND HYDROCHLOROTHIAZIDE [Suspect]
     Indication: HYPERTENSION
     Dosage: DF PO
     Route: 048

REACTIONS (2)
  - BLOOD PRESSURE INCREASED [None]
  - FALL [None]
